FAERS Safety Report 4498901-1 (Version None)
Quarter: 2004Q4

REPORT INFORMATION
  Report Type: 
  Country: None (occurrence: None)
  Receive Date: 20041110
  Receipt Date: 20041110
  Transmission Date: 20050328
  Serious: No
  Sender: FDA-Public Use
  Company Number: None

PATIENT
  Age: 66 Year
  Sex: Male

DRUGS (2)
  1. WARFARIN [Suspect]
     Indication: MITRAL VALVE REPLACEMENT
     Dosage: 5 MG QD PO [MANY YEARS]
     Route: 048
  2. ASPIRIN [Suspect]
     Indication: MITRAL VALVE REPLACEMENT
     Dosage: 81MG QD PO  [MANY YEARS]
     Route: 048

REACTIONS (3)
  - ANGIOPATHY [None]
  - POST PROCEDURAL COMPLICATION [None]
  - RECTAL HAEMORRHAGE [None]
